FAERS Safety Report 6637971-9 (Version None)
Quarter: 2010Q1

REPORT INFORMATION
  Report Type: 
  Country: None (occurrence: None)
  Receive Date: 20100315
  Receipt Date: 20100315
  Transmission Date: 20100710
  Serious: No
  Sender: FDA-Public Use
  Company Number: None

PATIENT
  Age: 56 Year
  Sex: Female
  Weight: 72.5755 kg

DRUGS (1)
  1. LISINOPRIL [Suspect]
     Indication: HYPERTENSION
     Dosage: ONE DAILY PO
     Route: 048
     Dates: start: 20091021, end: 20100215

REACTIONS (5)
  - CHOKING [None]
  - FATIGUE [None]
  - PHARYNGEAL OEDEMA [None]
  - PNEUMONIA [None]
  - RASH [None]
